FAERS Safety Report 8120519-X (Version None)
Quarter: 2012Q1

REPORT INFORMATION
  Report Type: 
  Country: None (occurrence: None)
  Receive Date: 20120207
  Receipt Date: 20120201
  Transmission Date: 20120608
  Serious: Yes (Hospitalization, Other)
  Sender: FDA-Public Use
  Company Number: DE-ABBOTT-11P-062-0871834-00

PATIENT
  Sex: Male

DRUGS (1)
  1. HUMIRA [Suspect]
     Indication: PSORIASIS
     Route: 058
     Dates: start: 20100719, end: 20111023

REACTIONS (5)
  - HYPERTENSION [None]
  - STRESS [None]
  - DYSPNOEA [None]
  - CARDIAC DISORDER [None]
  - SYNCOPE [None]
